FAERS Safety Report 9225768 (Version 1)
Quarter: 2013Q1

REPORT INFORMATION
  Report Type: Spontaneous
  Country: US (occurrence: None)
  Receive Date: 20120912
  Receipt Date: 20120912
  Transmission Date: 20140127
  Serious: No
  Sender: FDA-Public Use
  Company Number: 2012SP035544

PATIENT
  Age: 59 Year
  Sex: Female

DRUGS (8)
  1. VICTRELIS [Suspect]
     Indication: HEPATIC CIRRHOSIS
     Route: 048
     Dates: start: 201201
  2. PEGINTRON [Suspect]
     Indication: PRODUCT USED FOR UNKNOWN INDICATION
     Dates: start: 201112
  3. RIBASPHERE [Suspect]
     Indication: PRODUCT USED FOR UNKNOWN INDICATION
     Dates: start: 201112
  4. PROCRIT [Concomitant]
  5. VENLAFAXINE [Concomitant]
  6. TRAZODONE [Concomitant]
  7. NEXIUM [Concomitant]
  8. PROVIGIL [Concomitant]

REACTIONS (2)
  - Diarrhoea [None]
  - Asthenia [None]
